FAERS Safety Report 14651691 (Version 2)
Quarter: 2018Q2

REPORT INFORMATION
  Report Type: Spontaneous
  Country: IN (occurrence: IN)
  Receive Date: 20180317
  Receipt Date: 20180501
  Transmission Date: 20180711
  Serious: Yes (Other)
  Sender: FDA-Public Use
  Company Number: IN-SUN PHARMACEUTICAL INDUSTRIES LTD-2018R1-165896

PATIENT
  Sex: Female
  Weight: 1.86 kg

DRUGS (6)
  1. CYCLOPHOSPHAMIDE. [Suspect]
     Active Substance: CYCLOPHOSPHAMIDE
     Indication: HIGH-GRADE B-CELL LYMPHOMA
     Route: 064
  2. PREDNISOLONE. [Suspect]
     Active Substance: PREDNISOLONE
     Indication: HIGH-GRADE B-CELL LYMPHOMA
     Route: 064
  3. DOXORUBICIN [Suspect]
     Active Substance: DOXORUBICIN
     Indication: HIGH-GRADE B-CELL LYMPHOMA
     Route: 064
  4. VINCRISTINE [Suspect]
     Active Substance: VINCRISTINE
     Indication: HIGH-GRADE B-CELL LYMPHOMA
     Route: 064
  5. DEXAMETHASONE. [Suspect]
     Active Substance: DEXAMETHASONE
     Indication: PRODUCT USED FOR UNKNOWN INDICATION
     Route: 064
  6. RITUXIMAB. [Suspect]
     Active Substance: RITUXIMAB
     Indication: HIGH-GRADE B-CELL LYMPHOMA
     Route: 064

REACTIONS (3)
  - Low birth weight baby [Unknown]
  - Foetal exposure during pregnancy [Unknown]
  - Premature baby [Unknown]
